FAERS Safety Report 15343428 (Version 1)
Quarter: 2018Q3

REPORT INFORMATION
  Report Type: Report from Study
  Country: DE (occurrence: DE)
  Receive Date: 20180903
  Receipt Date: 20180903
  Transmission Date: 20181010
  Serious: Yes (Hospitalization, Other)
  Sender: FDA-Public Use
  Company Number: DE-AUROBINDO-AUR-APL-2018-043590

PATIENT

DRUGS (1)
  1. PARACETAMOL [Suspect]
     Active Substance: ACETAMINOPHEN
     Indication: PRODUCT USED FOR UNKNOWN INDICATION
     Dosage: 20 GRAM
     Route: 065

REACTIONS (4)
  - Toxicity to various agents [Recovered/Resolved]
  - Procalcitonin increased [Recovered/Resolved]
  - Drug-induced liver injury [Recovered/Resolved]
  - Overdose [Recovered/Resolved]
